FAERS Safety Report 10148822 (Version 1)
Quarter: 2014Q2

REPORT INFORMATION
  Report Type: Spontaneous
  Country: US (occurrence: US)
  Receive Date: 20140502
  Receipt Date: 20140502
  Transmission Date: 20141212
  Serious: No
  Sender: FDA-Public Use
  Company Number: US-009507513-1404USA014404

PATIENT
  Sex: Female

DRUGS (3)
  1. DESOGESTREL/ ETHINYL ESTRADIOL [Suspect]
     Route: 048
  2. CYCLESSA [Suspect]
     Indication: CONTRACEPTION
     Route: 048
  3. NUVARING [Suspect]
     Indication: CONTRACEPTION
     Route: 067

REACTIONS (2)
  - Headache [Unknown]
  - Adverse event [Unknown]
